FAERS Safety Report 21050223 (Version 4)
Quarter: 2022Q3

REPORT INFORMATION
  Report Type: Spontaneous
  Country: FR (occurrence: FR)
  Receive Date: 20220706
  Receipt Date: 20220728
  Transmission Date: 20221027
  Serious: Yes (Hospitalization, Other)
  Sender: FDA-Public Use
  Company Number: FR-BIOGEN-2022BI01137282

PATIENT
  Sex: Female
  Weight: 79.5 kg

DRUGS (7)
  1. TYSABRI [Suspect]
     Active Substance: NATALIZUMAB
     Indication: Multiple sclerosis
     Route: 050
     Dates: start: 20070419
  2. HYDROXYZINE [Concomitant]
     Active Substance: HYDROXYZINE HYDROCHLORIDE
     Indication: Product used for unknown indication
     Dosage: EVERY PM (0-0-1)
     Route: 050
  3. IXPRIM [Concomitant]
     Active Substance: ACETAMINOPHEN\TRAMADOL HYDROCHLORIDE
     Indication: Pain
     Dosage: TAKE TWICE AT AM NN PM (2-2-2)
     Route: 050
  4. ESCITALOPRAM [Concomitant]
     Active Substance: ESCITALOPRAM OXALATE
     Indication: Product used for unknown indication
     Dosage: EVERY AM (1-0-0)
     Route: 050
  5. LEVOTHYROXINE [Concomitant]
     Active Substance: LEVOTHYROXINE
     Indication: Hypothyroidism
     Dosage: LEVOTHYROX 50
     Route: 050
  6. ESCITALOPRAM OXALATE [Concomitant]
     Active Substance: ESCITALOPRAM OXALATE
     Indication: Depression
     Dosage: SEROPLEX 5
     Route: 050
  7. ATARAX [Concomitant]
     Active Substance: HYDROXYZINE HYDROCHLORIDE
     Indication: Depression
     Route: 050

REACTIONS (6)
  - Vascular device infection [Not Recovered/Not Resolved]
  - Endocarditis [Not Recovered/Not Resolved]
  - Haemorrhagic thyroid cyst [Not Recovered/Not Resolved]
  - Propionibacterium infection [Unknown]
  - Lymphadenitis [Unknown]
  - Dental caries [Unknown]
